FAERS Safety Report 6532430-6 (Version None)
Quarter: 2010Q1

REPORT INFORMATION
  Report Type: 
  Country: None (occurrence: None)
  Receive Date: 20100108
  Receipt Date: 20100104
  Transmission Date: 20100710
  Serious: Yes (Hospitalization)
  Sender: FDA-Public Use
  Company Number: US-ELI_LILLY_AND_COMPANY-US200912002297

PATIENT
  Sex: Male

DRUGS (7)
  1. HUMULIN N [Suspect]
     Indication: DIABETES MELLITUS
     Dosage: 8 U, 2/D
     Dates: end: 20090901
  2. HUMULIN R [Suspect]
     Indication: DIABETES MELLITUS
     Dosage: 20 U, 2/D
     Dates: end: 20090901
  3. HUMULIN R [Suspect]
     Dosage: UNK, AS NEEDED
     Dates: start: 20010101, end: 20090901
  4. HUMULIN R [Suspect]
     Dosage: 30 U, 2/D
     Dates: start: 20091102
  5. HUMULIN R [Suspect]
     Dosage: 30 U, 2/D
     Dates: start: 20091102
  6. HUMALOG [Suspect]
     Indication: DIABETES MELLITUS
     Dates: start: 20090901, end: 20091001
  7. LANTUS [Concomitant]

REACTIONS (8)
  - BLOOD GLUCOSE DECREASED [None]
  - BLOOD GLUCOSE INCREASED [None]
  - BLOOD TRIGLYCERIDES INCREASED [None]
  - DRUG INEFFECTIVE [None]
  - LIPIDS INCREASED [None]
  - POOR QUALITY SLEEP [None]
  - VISUAL IMPAIRMENT [None]
  - WEIGHT INCREASED [None]
